FAERS Safety Report 20874292 (Version 3)
Quarter: 2022Q3

REPORT INFORMATION
  Report Type: Spontaneous
  Country: US (occurrence: US)
  Receive Date: 20220525
  Receipt Date: 20220714
  Transmission Date: 20221027
  Serious: Yes (Hospitalization, Other)
  Sender: FDA-Public Use
  Company Number: US-PFIZER INC-202200749867

PATIENT
  Age: 75 Year
  Sex: Female
  Weight: 53.52 kg

DRUGS (2)
  1. TOVIAZ [Suspect]
     Active Substance: FESOTERODINE FUMARATE
     Indication: Urinary retention
     Dosage: 4 MG, 1X/DAY
     Route: 048
     Dates: start: 20220503, end: 20220522
  2. KEFLEX [Concomitant]
     Active Substance: CEPHALEXIN
     Indication: Blood pressure abnormal
     Dosage: UNK

REACTIONS (13)
  - Hyponatraemia [Not Recovered/Not Resolved]
  - Cerebrovascular accident [Unknown]
  - Cardiac flutter [Unknown]
  - Dizziness [Unknown]
  - Gait disturbance [Unknown]
  - Feeling drunk [Unknown]
  - Cystitis [Unknown]
  - Asthenia [Unknown]
  - Muscular weakness [Unknown]
  - Feeling abnormal [Not Recovered/Not Resolved]
  - Dry mouth [Unknown]
  - Speech disorder [Recovering/Resolving]
  - Drug ineffective [Unknown]

NARRATIVE: CASE EVENT DATE: 20220501
